FAERS Safety Report 11432700 (Version 1)
Quarter: 2015Q3

REPORT INFORMATION
  Report Type: Spontaneous
  Country: US (occurrence: US)
  Receive Date: 20150828
  Receipt Date: 20150828
  Transmission Date: 20151125
  Serious: Yes (Other)
  Sender: FDA-Public Use
  Company Number: US-BAYER-2015-407815

PATIENT
  Age: 66 Year
  Sex: Female
  Weight: 113.38 kg

DRUGS (7)
  1. ZEGERID OTC CAPSULES [Suspect]
     Active Substance: OMEPRAZOLE\SODIUM BICARBONATE
     Indication: GASTROOESOPHAGEAL REFLUX DISEASE
     Dosage: 2 DF, QD
     Route: 048
     Dates: start: 2015
  2. VALSARTAN. [Concomitant]
     Active Substance: VALSARTAN
  3. AMLODIPINE [Concomitant]
     Active Substance: AMLODIPINE BESYLATE
  4. ANASTROZOLE. [Concomitant]
     Active Substance: ANASTROZOLE
  5. ZOCOR [Concomitant]
     Active Substance: SIMVASTATIN
  6. ZEGERID OTC CAPSULES [Suspect]
     Active Substance: OMEPRAZOLE\SODIUM BICARBONATE
     Indication: GASTROOESOPHAGEAL REFLUX DISEASE
     Dosage: 1 DF, QD
     Route: 048
     Dates: start: 2014
  7. ZEGERID OTC CAPSULES [Suspect]
     Active Substance: OMEPRAZOLE\SODIUM BICARBONATE
     Indication: LAXATIVE SUPPORTIVE CARE
     Dosage: 2 DF, PRN
     Route: 048
     Dates: start: 2014

REACTIONS (8)
  - Abdominal distension [Not Recovered/Not Resolved]
  - Weight decreased [None]
  - Breast cancer [None]
  - Therapeutic response unexpected [None]
  - Pancreatic carcinoma [None]
  - Off label use [None]
  - Diarrhoea [Not Recovered/Not Resolved]
  - Product use issue [None]

NARRATIVE: CASE EVENT DATE: 2014
